FAERS Safety Report 5644179-2 (Version None)
Quarter: 2008Q1

REPORT INFORMATION
  Report Type: 
  Country: None (occurrence: None)
  Receive Date: 20080227
  Receipt Date: 20080227
  Transmission Date: 20080703
  Serious: Yes (Life-Threatening, Hospitalization)
  Sender: FDA-Public Use
  Company Number: None

PATIENT
  Sex: Female
  Weight: 56.6996 kg

DRUGS (2)
  1. DEFERASIROX 1500MG/DAY NOVARTIS [Suspect]
     Indication: IRON OVERLOAD
     Dosage: 1500 MG PER DAY PO
     Route: 048
     Dates: start: 20060304, end: 20070104
  2. DEFERASIROX 1500MG/DAY NOVARTIS [Suspect]
     Indication: IRON OVERLOAD
     Dosage: 1500 MG PER DAY PO
     Route: 048
     Dates: start: 20070506, end: 20070707

REACTIONS (3)
  - CALCIUM IONISED DECREASED [None]
  - HYPOCALCAEMIA [None]
  - SERUM FERRITIN DECREASED [None]
